FAERS Safety Report 9297564 (Version 2)
Quarter: 2014Q1

REPORT INFORMATION
  Report Type: Report from Study
  Country: DE (occurrence: DE)
  Receive Date: 20130520
  Receipt Date: 20140228
  Transmission Date: 20141002
  Serious: No
  Sender: FDA-Public Use
  Company Number: DE-JNJFOC-20130418019

PATIENT
  Age: 79 Year
  Sex: Female
  Weight: 51 kg

DRUGS (10)
  1. RIVAROXABAN [Suspect]
     Indication: THROMBOSIS PROPHYLAXIS
     Route: 048
     Dates: start: 20121124
  2. RIVAROXABAN [Suspect]
     Indication: CEREBROVASCULAR ACCIDENT PROPHYLAXIS
     Route: 048
     Dates: start: 20121124
  3. ATACAND [Concomitant]
     Route: 065
  4. HCT [Concomitant]
     Route: 065
  5. RANITIC [Concomitant]
     Route: 065
  6. PRAVASTATIN [Concomitant]
     Route: 065
  7. ASS [Concomitant]
     Route: 065
  8. SPIRONOLACTON [Concomitant]
     Route: 065
  9. TOREM [Concomitant]
     Route: 065
  10. PANTOPRAZOLE [Concomitant]
     Route: 065

REACTIONS (3)
  - Photopsia [Recovered/Resolved]
  - Vomiting [Recovered/Resolved]
  - Nausea [Recovered/Resolved]
